FAERS Safety Report 8559002 (Version 3)
Quarter: 2013Q2

REPORT INFORMATION
  Report Type: Spontaneous
  Country: US (occurrence: None)
  Receive Date: 20120507
  Receipt Date: 20130327
  Transmission Date: 20140414
  Serious: Yes (Other)
  Sender: FDA-Public Use
  Company Number: 2012-0679

PATIENT
  Age: 21 Year
  Sex: Male
  Weight: 113.3 kg

DRUGS (3)
  1. SOMATULINE DEPOT [Suspect]
     Indication: ACROMEGALY
     Route: 058
     Dates: start: 20120127, end: 20120224
  2. LEVOTHYROXINE SODIUM [Concomitant]
  3. DDVAP (DESMOPRESSIN) [Concomitant]

REACTIONS (5)
  - DIARRHOEA [None]
  - JAW DISORDER [None]
  - NAUSEA [None]
  - FLATULENCE [None]
  - VOMITING [None]
